FAERS Safety Report 17589003 (Version 1)
Quarter: 2020Q1

REPORT INFORMATION
  Report Type: Spontaneous
  Country: FR (occurrence: FR)
  Receive Date: 20200327
  Receipt Date: 20200327
  Transmission Date: 20200409
  Serious: Yes (Other)
  Sender: FDA-Public Use
  Company Number: FR-TEVA-2020-FR-1211240

PATIENT
  Age: 6 Month
  Sex: Male
  Weight: 7.5 kg

DRUGS (2)
  1. RISPERDAL [Suspect]
     Active Substance: RISPERIDONE
     Indication: MENTAL DISORDER
     Dosage: 2 MG
     Route: 063
     Dates: start: 201909
  2. MESILATE DE PAROXETINE [Suspect]
     Active Substance: PAROXETINE MESYLATE
     Indication: MENTAL DISORDER
     Dosage: 20 MG
     Route: 063
     Dates: start: 201903

REACTIONS (2)
  - Weight gain poor [Not Recovered/Not Resolved]
  - Failure to thrive [Not Recovered/Not Resolved]

NARRATIVE: CASE EVENT DATE: 201909
